FAERS Safety Report 5337392-5 (Version None)
Quarter: 2007Q2

REPORT INFORMATION
  Report Type: 
  Country: None (occurrence: None)
  Receive Date: 20070313
  Receipt Date: 20061219
  Transmission Date: 20071010
  Serious: Yes (Life-Threatening, Other)
  Sender: FDA-Public Use
  Company Number: VER_0033_2006

PATIENT
  Age: 24 Month
  Sex: Male

DRUGS (1)
  1. EPINEPHRINE [Suspect]
     Indication: FOOD ALLERGY
     Dosage: 0.15 MQ/SQM SC
     Route: 058
     Dates: start: 20061217

REACTIONS (3)
  - DEVICE MALFUNCTION [None]
  - ERYTHEMA [None]
  - PHARMACEUTICAL PRODUCT COMPLAINT [None]
